FAERS Safety Report 9540140 (Version 1)
Quarter: 2013Q2

REPORT INFORMATION
  Report Type: Spontaneous
  Country: US (occurrence: None)
  Receive Date: 20130521
  Receipt Date: 20130521
  Transmission Date: 20140414
  Serious: Yes (Other)
  Sender: FDA-Public Use
  Company Number: 1000044456

PATIENT
  Sex: Female

DRUGS (2)
  1. TUDORZA PRESSAIR [Suspect]
     Indication: ASTHMA
     Dosage: 400 MCG (400 MCG,L IN 1 D),RESPIRATORY (INHALATION)
  2. SYMBICORT(BUDESONIDE W/FORMOTEROL FUMARATE)(BUDESONIDE W/FORMOTEROL FUMARATE) [Concomitant]

REACTIONS (2)
  - Throat irritation [None]
  - Off label use [None]
